FAERS Safety Report 9570019 (Version 1)
Quarter: 2013Q3

REPORT INFORMATION
  Report Type: Spontaneous
  Country: US (occurrence: US)
  Receive Date: 20130930
  Receipt Date: 20130930
  Transmission Date: 20140515
  Serious: No
  Sender: FDA-Public Use
  Company Number: US-AMGEN-USASP2013065110

PATIENT
  Age: 53 Year
  Sex: Male
  Weight: 117.91 kg

DRUGS (1)
  1. ENBREL [Suspect]
     Indication: RHEUMATOID ARTHRITIS
     Dosage: UNK
     Route: 065
     Dates: start: 201003, end: 201004

REACTIONS (3)
  - Dizziness [Unknown]
  - Hyperhidrosis [Unknown]
  - Rash [Unknown]
